FAERS Safety Report 5387626-6 (Version None)
Quarter: 2007Q3

REPORT INFORMATION
  Report Type: 
  Country: None (occurrence: None)
  Receive Date: 20070712
  Receipt Date: 20070712
  Transmission Date: 20080115
  Serious: Yes (Hospitalization)
  Sender: FDA-Public Use
  Company Number: None

PATIENT
  Age: 82 Year
  Sex: Male

DRUGS (6)
  1. FELODIPINE [Suspect]
     Indication: CORONARY ARTERY DISEASE
     Dosage: 5MG EVERY DAY PO
     Route: 048
     Dates: start: 20070413, end: 20070704
  2. FELODIPINE [Suspect]
     Indication: HYPERTENSION
     Dosage: 5MG EVERY DAY PO
     Route: 048
     Dates: start: 20070413, end: 20070704
  3. FELODIPINE [Suspect]
     Indication: MYOCARDIAL INFARCTION
     Dosage: 5MG EVERY DAY PO
     Route: 048
     Dates: start: 20070413, end: 20070704
  4. METOPROLOL SUCCINATE [Suspect]
     Indication: CORONARY ARTERY DISEASE
     Dosage: 25MG BID PO
     Route: 048
     Dates: start: 20060420
  5. METOPROLOL SUCCINATE [Suspect]
     Indication: HYPERTENSION
     Dosage: 25MG BID PO
     Route: 048
     Dates: start: 20060420
  6. METOPROLOL SUCCINATE [Suspect]
     Indication: MYOCARDIAL INFARCTION
     Dosage: 25MG BID PO
     Route: 048
     Dates: start: 20060420

REACTIONS (1)
  - BRADYCARDIA [None]
